FAERS Safety Report 19755963 (Version 5)
Quarter: 2022Q3

REPORT INFORMATION
  Report Type: Report from Study
  Country: CN (occurrence: None)
  Receive Date: 20210827
  Receipt Date: 20220719
  Transmission Date: 20221027
  Serious: Yes (Hospitalization)
  Sender: FDA-Public Use
  Company Number: CN-ROCHE-2894990

PATIENT
  Age: 74 Year
  Sex: Male
  Weight: 63 kg

DRUGS (29)
  1. RITUXIMAB [Suspect]
     Active Substance: RITUXIMAB
     Indication: Non-Hodgkin^s lymphoma
     Dosage: START DATE OF MOST RECENT DOSE OF STUDY DRUG?PRIOR TO AE 27-JUL-2021
     Route: 041
     Dates: start: 20210727
  2. CYCLOPHOSPHAMIDE [Suspect]
     Active Substance: CYCLOPHOSPHAMIDE
     Indication: Non-Hodgkin^s lymphoma
     Dosage: START DATE OF MOST RECENT DOSE OF STUDY DRUG?PRIOR TO AE 27/JUL/2021
     Route: 042
     Dates: start: 20210727
  3. VINCRISTINE [Suspect]
     Active Substance: VINCRISTINE
     Indication: Non-Hodgkin^s lymphoma
     Route: 042
     Dates: start: 20210727
  4. DOXORUBICIN [Suspect]
     Active Substance: DOXORUBICIN
     Indication: Non-Hodgkin^s lymphoma
     Route: 042
     Dates: start: 20210727
  5. PREDNISONE [Suspect]
     Active Substance: PREDNISONE
     Indication: Non-Hodgkin^s lymphoma
     Dosage: START DATE OF MOST RECENT DOSE OF STUDY DRUG?PRIOR TO AE 31-JUL-2021
     Route: 048
     Dates: start: 20210727
  6. LORATADINE [Concomitant]
     Active Substance: LORATADINE
     Route: 048
     Dates: start: 20210717, end: 20210722
  7. ACETAMINOPHEN [Concomitant]
     Active Substance: ACETAMINOPHEN
     Route: 048
     Dates: start: 20210727, end: 20210727
  8. ACETAMINOPHEN [Concomitant]
     Active Substance: ACETAMINOPHEN
     Route: 048
     Dates: end: 20210824
  9. PROMETHAZINE HYDROCHLORIDE [Concomitant]
     Active Substance: PROMETHAZINE HYDROCHLORIDE
     Route: 030
     Dates: start: 20210727, end: 20210727
  10. PROMETHAZINE HYDROCHLORIDE [Concomitant]
     Active Substance: PROMETHAZINE HYDROCHLORIDE
     Route: 030
     Dates: start: 20210824, end: 20210824
  11. AVELOX [Concomitant]
     Active Substance: MOXIFLOXACIN HYDROCHLORIDE
     Dates: start: 20210726, end: 20210726
  12. TROPISETRON MESYLATE [Concomitant]
     Route: 042
     Dates: start: 20210727, end: 20210727
  13. TROPISETRON MESYLATE [Concomitant]
     Dosage: PRN
     Route: 042
     Dates: start: 20210824, end: 20210824
  14. MESNA [Concomitant]
     Active Substance: MESNA
     Dates: start: 20210727, end: 20210727
  15. MESNA [Concomitant]
     Active Substance: MESNA
     Route: 042
     Dates: start: 20210728, end: 20210728
  16. MESNA [Concomitant]
     Active Substance: MESNA
     Route: 042
     Dates: start: 20210825, end: 20210825
  17. MESNA [Concomitant]
     Active Substance: MESNA
     Route: 042
     Dates: start: 20210824, end: 20210824
  18. SODIUM BICARBONATE [Concomitant]
     Active Substance: SODIUM BICARBONATE
     Route: 042
     Dates: start: 20210727, end: 20210727
  19. SODIUM BICARBONATE [Concomitant]
     Active Substance: SODIUM BICARBONATE
     Route: 042
     Dates: start: 20210824, end: 20210824
  20. FUROSEMIDE [Concomitant]
     Active Substance: FUROSEMIDE
     Indication: Polyuria
     Route: 042
     Dates: start: 20210727, end: 20210727
  21. FUROSEMIDE [Concomitant]
     Active Substance: FUROSEMIDE
     Route: 042
     Dates: start: 20210824, end: 20210824
  22. LIDOCAINE HYDROCHLORIDE [Concomitant]
     Active Substance: LIDOCAINE HYDROCHLORIDE
     Indication: Local anaesthesia
     Route: 023
     Dates: start: 20210727, end: 20210727
  23. COENZYME Q10 [Concomitant]
     Active Substance: DIETARY SUPPLEMENT\UBIDECARENONE
     Dates: start: 20210727, end: 20210808
  24. POTASSIUM CHLORIDE [Concomitant]
     Active Substance: POTASSIUM CHLORIDE
     Route: 048
     Dates: start: 20210727, end: 20210804
  25. CALCIUM CARBONATE [Concomitant]
     Active Substance: CALCIUM CARBONATE
     Route: 048
     Dates: start: 20210727, end: 202204
  26. ENTECAVIR [Concomitant]
     Active Substance: ENTECAVIR
     Route: 048
     Dates: start: 20210727
  27. HERBALS\DIAMMONIUM GLYCYRRHIZINATE [Concomitant]
     Active Substance: HERBALS\DIAMMONIUM GLYCYRRHIZINATE
     Route: 048
     Dates: start: 20210727, end: 20210729
  28. OMEPRAZOLE [Concomitant]
     Active Substance: OMEPRAZOLE
     Route: 048
     Dates: start: 20210727, end: 20210802
  29. OMEPRAZOLE [Concomitant]
     Active Substance: OMEPRAZOLE
     Route: 048
     Dates: start: 20210824, end: 20210830

REACTIONS (2)
  - Alanine aminotransferase increased [Recovered/Resolved]
  - Aspartate aminotransferase increased [Recovered/Resolved]

NARRATIVE: CASE EVENT DATE: 20210816
